FAERS Safety Report 8048587-4 (Version None)
Quarter: 2012Q1

REPORT INFORMATION
  Report Type: 
  Country: None (occurrence: None)
  Receive Date: 20120117
  Receipt Date: 20120108
  Transmission Date: 20120608
  Serious: Yes (Other)
  Sender: FDA-Public Use
  Company Number: US-BAYER-2012-003190

PATIENT
  Age: 76 Year
  Sex: Male
  Weight: 73.469 kg

DRUGS (6)
  1. LEVOXYL [Concomitant]
  2. ALEVE (CAPLET) [Suspect]
     Dosage: 1 DF, QD, BOTTLE COUNT 130CT
     Route: 048
  3. CARBIDOPA AND LEVODOPA [Concomitant]
  4. METOPROLOL TARTRATE [Concomitant]
  5. ASPIRIN [Suspect]
  6. MIRAPEX [Concomitant]

REACTIONS (2)
  - BLOOD PRESSURE INCREASED [None]
  - DIZZINESS [None]
